FAERS Safety Report 6492857-8 (Version None)
Quarter: 2009Q4

REPORT INFORMATION
  Report Type: 
  Country: None (occurrence: None)
  Receive Date: 20091209
  Receipt Date: 20091201
  Transmission Date: 20100525
  Serious: Yes (Other)
  Sender: FDA-Public Use
  Company Number: 2008US001996

PATIENT
  Age: 18 Year
  Sex: Male
  Weight: 56.7 kg

DRUGS (4)
  1. PROTOPIC [Suspect]
     Indication: VITILIGO
     Dosage: 0.1 %, D, TOPICAL
     Route: 061
     Dates: start: 20011025, end: 20040721
  2. ELIDEL [Suspect]
     Indication: ECZEMA
     Dosage: 1%, D, TOPICAL
     Route: 061
     Dates: start: 20020101
  3. ZODERM (BENZOYL PEROXIDE) [Concomitant]
  4. CORTICOSTEROIDS [Concomitant]

REACTIONS (3)
  - ACUTE PULMONARY HISTOPLASMOSIS [None]
  - TESTICULAR MICROLITHIASIS [None]
  - TESTIS CANCER [None]
